FAERS Safety Report 7289844-9 (Version None)
Quarter: 2011Q1

REPORT INFORMATION
  Report Type: 
  Country: None (occurrence: None)
  Receive Date: 20110214
  Receipt Date: 20110204
  Transmission Date: 20110831
  Serious: No
  Sender: FDA-Public Use
  Company Number: US-BIOGENIDEC-2011BI004503

PATIENT
  Age: 57 Year
  Sex: Female

DRUGS (4)
  1. AVONEX [Suspect]
     Route: 030
     Dates: start: 20100514
  2. AVONEX [Suspect]
     Route: 030
     Dates: start: 20050408, end: 20060713
  3. AVONEX [Suspect]
     Indication: MULTIPLE SCLEROSIS
     Route: 030
     Dates: start: 20080922
  4. AVONEX [Suspect]
     Route: 030
     Dates: start: 20081115, end: 20081115

REACTIONS (1)
  - DIARRHOEA [None]
